FAERS Safety Report 8800516 (Version 3)
Quarter: 2012Q4

REPORT INFORMATION
  Report Type: Report from Study
  Country: JP (occurrence: JP)
  Receive Date: 20120921
  Receipt Date: 20121228
  Transmission Date: 20130627
  Serious: Yes (Other)
  Sender: FDA-Public Use
  Company Number: JP-VERTEX PHARMACEUTICAL INC.-AE-2012-009550

PATIENT
  Age: 54 Year
  Sex: Male

DRUGS (11)
  1. VX-950 (TELAPREVIR) [Suspect]
     Indication: CHRONIC HEPATITIS C
     Dosage: 2250 mg, qd
     Route: 048
     Dates: start: 20120308, end: 20120531
  2. PEGINTERFERON ALFA-2B [Suspect]
     Indication: CHRONIC HEPATITIS C
     Dosage: 1.5 ?g/kg, qw
     Route: 058
     Dates: start: 20120308, end: 20120814
  3. RIBAVIRIN [Suspect]
     Indication: CHRONIC HEPATITIS C
     Dosage: 800 mg, qd
     Route: 048
     Dates: start: 20120308, end: 20120820
  4. GLYCRON                            /00145301/ [Concomitant]
     Dosage: 6 DF, qd
     Route: 048
     Dates: end: 20120322
  5. PROHEPARUM [Concomitant]
     Dosage: 6 DF, qd
     Route: 048
     Dates: end: 20120322
  6. GASTER [Concomitant]
     Dosage: 20 mg, qd
     Route: 048
  7. LENDORMIN [Concomitant]
     Dosage: 0.25 mg, qd
     Route: 048
  8. DEPAS [Concomitant]
     Dosage: 1 mg, qd
     Route: 048
     Dates: end: 20120419
  9. DEPAS [Concomitant]
     Dosage: 1.5 mg, qd
     Route: 048
     Dates: start: 20120420
  10. URSO                               /00465701/ [Concomitant]
     Dosage: 900 mg, qd
     Route: 048
     Dates: end: 20120322
  11. URSO                               /00465701/ [Concomitant]
     Dosage: 600 mg, qd
     Route: 048
     Dates: start: 20120323, end: 20120405

REACTIONS (1)
  - Epidermolysis [Recovered/Resolved]
